FAERS Safety Report 15888927 (Version 1)
Quarter: 2019Q1

REPORT INFORMATION
  Report Type: Spontaneous
  Country: US (occurrence: US)
  Receive Date: 20190129
  Receipt Date: 20190129
  Transmission Date: 20190417
  Serious: Yes (Other)
  Sender: FDA-Public Use
  Company Number: None

PATIENT
  Age: 29 Year
  Sex: Male
  Weight: 72 kg

DRUGS (2)
  1. LOSARTAN POT 50MG TABLET [Suspect]
     Active Substance: LOSARTAN POTASSIUM
     Indication: IGA NEPHROPATHY
     Dosage: ?          QUANTITY:30 TABLET(S);?
     Route: 048
     Dates: start: 20190103, end: 20190128
  2. IRON [Concomitant]
     Active Substance: IRON

REACTIONS (4)
  - Malaise [None]
  - Insomnia [None]
  - Dyspnoea [None]
  - Headache [None]

NARRATIVE: CASE EVENT DATE: 20190104
